FAERS Safety Report 17550315 (Version 2)
Quarter: 2020Q1

REPORT INFORMATION
  Report Type: Report from Study
  Country: PL (occurrence: PL)
  Receive Date: 20200317
  Receipt Date: 20200317
  Transmission Date: 20200409
  Serious: Yes (Other)
  Sender: FDA-Public Use
  Company Number: PL-PFIZER INC-2020109918

PATIENT
  Age: 71 Year
  Sex: Male

DRUGS (7)
  1. PROMAZINE [Interacting]
     Active Substance: PROMAZINE
  2. TRAMADOL/PARACETAMOL [Concomitant]
     Active Substance: ACETAMINOPHEN\TRAMADOL
  3. ZOFENOPRIL [Concomitant]
     Active Substance: ZOFENOPRIL
  4. LERCANIDIPINE [Concomitant]
     Active Substance: LERCANIDIPINE
  5. SPIRONOLACTONE. [Concomitant]
     Active Substance: SPIRONOLACTONE
  6. DOXAZOSIN MESILATE [Suspect]
     Active Substance: DOXAZOSIN MESYLATE
  7. CHONDROITIN SULPHATE [Concomitant]
     Active Substance: SODIUM CHONDROITIN SULFATE

REACTIONS (4)
  - Drug interaction [Unknown]
  - Femoral neck fracture [Unknown]
  - Fall [Unknown]
  - Hypotension [Unknown]
